FAERS Safety Report 7308017-4 (Version None)
Quarter: 2011Q1

REPORT INFORMATION
  Report Type: 
  Country: None (occurrence: None)
  Receive Date: 20110223
  Receipt Date: 20110210
  Transmission Date: 20110831
  Serious: Yes (Other)
  Sender: FDA-Public Use
  Company Number: US-ROCHE-731175

PATIENT
  Sex: Male
  Weight: 88.5 kg

DRUGS (1)
  1. ACCUTANE [Suspect]
     Indication: ACNE
     Dosage: DOSE: 80 MG AND 40 MG ON ALTERNATE DAYS, 30 MG AND 40 MG ON ALTERNATE DAYS
     Route: 065
     Dates: start: 19880101, end: 19911201

REACTIONS (15)
  - GASTROINTESTINAL INJURY [None]
  - CONTUSION [None]
  - BACK PAIN [None]
  - CROHN'S DISEASE [None]
  - SKIN PAPILLOMA [None]
  - ABSCESS LIMB [None]
  - INTESTINAL OBSTRUCTION [None]
  - CYST [None]
  - HEADACHE [None]
  - MUSCLE STRAIN [None]
  - PHARYNGITIS [None]
  - CHRONIC SINUSITIS [None]
  - MEDIAL TIBIAL STRESS SYNDROME [None]
  - JOINT INJURY [None]
  - INFLAMMATORY BOWEL DISEASE [None]
